FAERS Safety Report 23344916 (Version 1)
Quarter: 2023Q4

REPORT INFORMATION
  Report Type: Spontaneous
  Country: US (occurrence: US)
  Receive Date: 20231228
  Receipt Date: 20231228
  Transmission Date: 20240110
  Serious: No
  Sender: FDA-Public Use
  Company Number: US-E2BLSMVVAL-SPO/USA/23/0032703

PATIENT
  Age: 15 Year
  Sex: Female

DRUGS (1)
  1. ZENATANE [Suspect]
     Active Substance: ISOTRETINOIN
     Indication: Acne
     Dosage: ZENATANE (ISOTRETINOIN CAPSULES, USP) CAPSULES  40 MG - DRL BOX OF 30

REACTIONS (2)
  - Adverse drug reaction [Unknown]
  - Therapy cessation [Unknown]
